FAERS Safety Report 20757344 (Version 1)
Quarter: 2022Q2

REPORT INFORMATION
  Report Type: Spontaneous
  Country: DE (occurrence: DE)
  Receive Date: 20220427
  Receipt Date: 20220427
  Transmission Date: 20220721
  Serious: Yes (Hospitalization, Other)
  Sender: FDA-Public Use
  Company Number: DE-NOVARTISPH-NVSC2022DE093162

PATIENT
  Age: 52 Year
  Sex: Male
  Weight: 89 kg

DRUGS (8)
  1. LOSARTAN [Suspect]
     Active Substance: LOSARTAN
     Indication: Hypertension
     Dosage: 50 MG
     Route: 048
     Dates: start: 20151126
  2. LOSARTAN [Suspect]
     Active Substance: LOSARTAN
     Dosage: 50 MG, BID, (ONCE IN THE MORNING, ONCE IN THE EVENING (1-0-1))
     Route: 065
  3. LOSARTAN [Suspect]
     Active Substance: LOSARTAN
     Dosage: 50 MG, BID, (ONCE IN THE MORNING, ONCE IN THE EVENING (1-0-1))
     Route: 065
     Dates: start: 2020, end: 20211002
  4. LOSARTAN [Suspect]
     Active Substance: LOSARTAN
     Dosage: 15 MG, QD, (MORNING)
     Route: 065
  5. AMLODIPINE [Concomitant]
     Active Substance: AMLODIPINE BESYLATE
     Indication: Hypertension
     Dosage: 1 DOSAGE FORM, QD, (MORNING)
     Route: 065
  6. AMLODIPINE [Concomitant]
     Active Substance: AMLODIPINE BESYLATE
     Dosage: 1 DOSAGE FORM, QD, (NOON, 0-1-0-0)
     Route: 065
  7. PANTOZOL [Concomitant]
     Active Substance: PANTOPRAZOLE SODIUM
     Indication: Product used for unknown indication
     Dosage: 20 MG, QD, (IN THE EVENING)
     Route: 065
     Dates: start: 202201, end: 202202
  8. PANTOZOL [Concomitant]
     Active Substance: PANTOPRAZOLE SODIUM
     Dosage: 40 MG, QD, (IN THE MORNING)
     Route: 065
     Dates: start: 202202

REACTIONS (27)
  - Necrosis [Recovered/Resolved]
  - Peritonitis [Recovered/Resolved]
  - Abdominal adhesions [Recovered/Resolved]
  - General physical health deterioration [Recovered/Resolved]
  - Abdominal pain [Recovered/Resolved]
  - Faecaloma [Unknown]
  - Appendicitis [Unknown]
  - Systemic inflammatory response syndrome [Unknown]
  - Hypokalaemia [Unknown]
  - Weight decreased [Unknown]
  - Thrombocytopenia [Unknown]
  - Intervertebral disc protrusion [Unknown]
  - Diverticulum [Unknown]
  - Osteoarthritis [Unknown]
  - Bladder hypertrophy [Unknown]
  - Arteriosclerosis [Unknown]
  - Blood calcitonin decreased [Unknown]
  - Dyspnoea exertional [Unknown]
  - Umbilical hernia [Unknown]
  - Abdominal pain lower [Unknown]
  - Abdominal distension [Unknown]
  - Fluid retention [Unknown]
  - Hypotonia [Unknown]
  - Hepatic lesion [Unknown]
  - Alanine aminotransferase increased [Unknown]
  - Nausea [Unknown]
  - Palpitations [Unknown]

NARRATIVE: CASE EVENT DATE: 20190101
